FAERS Safety Report 4299158-7 (Version None)
Quarter: 2004Q1

REPORT INFORMATION
  Report Type: 
  Country: None (occurrence: None)
  Receive Date: 20040217
  Receipt Date: 20040204
  Transmission Date: 20041129
  Serious: Yes (Hospitalization)
  Sender: FDA-Public Use
  Company Number: MK200402-0101-1

PATIENT
  Age: 40 Year
  Sex: Female

DRUGS (7)
  1. ANAFRANIL CAP [Suspect]
     Dates: start: 20030801, end: 20040106
  2. GLEEVEC [Suspect]
     Dates: start: 20030801, end: 20031215
  3. DIANE [Suspect]
     Dates: start: 20030801, end: 20031215
  4. CORTANCYL [Suspect]
     Dates: start: 20030801, end: 20031215
  5. LASILIS [Suspect]
     Dates: start: 20030801, end: 20031215
  6. ZYRTEC [Suspect]
     Dates: start: 20030801, end: 20031215
  7. AVLOCARDYL [Concomitant]

REACTIONS (4)
  - CHOLESTASIS [None]
  - CYTOLYTIC HEPATITIS [None]
  - HEPATOTOXICITY [None]
  - URTICARIA [None]
